FAERS Safety Report 5379996-X (Version None)
Quarter: 2007Q2

REPORT INFORMATION
  Report Type: 
  Country: None (occurrence: None)
  Receive Date: 20070530
  Receipt Date: 20070303
  Transmission Date: 20071010
  Serious: No
  Sender: FDA-Public Use
  Company Number: 2007PV031061

PATIENT
  Age: 54 Year
  Sex: Female

DRUGS (3)
  1. BYETTA [Suspect]
     Indication: DIABETES MELLITUS NON-INSULIN-DEPENDENT
     Dosage: 5 MCG;BID;SC
     Route: 058
     Dates: start: 20070227
  2. ACTOPLUS MET [Concomitant]
  3. METFORMIN HCL [Concomitant]

REACTIONS (3)
  - DIARRHOEA [None]
  - PAIN [None]
  - POLLAKIURIA [None]
